FAERS Safety Report 5311165-1 (Version None)
Quarter: 2007Q2

REPORT INFORMATION
  Report Type: 
  Country: None (occurrence: None)
  Receive Date: 20070430
  Receipt Date: 20070416
  Transmission Date: 20071010
  Serious: Yes (Other)
  Sender: FDA-Public Use
  Company Number: JP-ROCHE-433742

PATIENT
  Age: 19 Year
  Sex: Male

DRUGS (7)
  1. TAMIFLU [Suspect]
     Route: 048
     Dates: start: 20060111, end: 20060111
  2. VOLTAREN [Suspect]
     Indication: HYPERTHERMIA
     Route: 048
     Dates: start: 20060111, end: 20060111
  3. MEDICON [Concomitant]
     Route: 048
     Dates: start: 20060111, end: 20060111
  4. LEFTOSE [Concomitant]
     Route: 048
     Dates: start: 20060111, end: 20060111
  5. SODIUM AZULENE SULFONATE [Concomitant]
     Dosage: DRUG REPORTED AS MESADORIN-S.
     Route: 048
     Dates: start: 20060111, end: 20060111
  6. CLARITHROMYCIN [Concomitant]
     Route: 048
     Dates: start: 20060111, end: 20060111
  7. BUFFERIN [Concomitant]
     Route: 048
     Dates: start: 20060111

REACTIONS (2)
  - AGITATION [None]
  - RESTLESSNESS [None]
